FAERS Safety Report 23695655 (Version 3)
Quarter: 2025Q1

REPORT INFORMATION
  Report Type: Spontaneous
  Country: US (occurrence: US)
  Receive Date: 20240402
  Receipt Date: 20250310
  Transmission Date: 20250409
  Serious: Yes (Other)
  Sender: AMGEN
  Company Number: US-AMGEN-USASP2024062201

PATIENT
  Age: 47 Year
  Sex: Female

DRUGS (10)
  1. OTEZLA [Suspect]
     Active Substance: APREMILAST
     Indication: Psoriatic arthropathy
     Dosage: 30 MILLIGRAM, BID
     Route: 048
     Dates: end: 202307
  2. OTEZLA [Suspect]
     Active Substance: APREMILAST
     Indication: Psoriasis
     Dosage: 30 MILLIGRAM, BID
     Route: 048
  3. MAGNESIUM GLUCONATE [Concomitant]
     Active Substance: MAGNESIUM GLUCONATE
  4. CYANOCOBALAMIN\DEXPANTHENOL\NIACINAMIDE\PYRIDOXINE HYDROCHLORIDE\RIBOF [Concomitant]
     Active Substance: CYANOCOBALAMIN\DEXPANTHENOL\NIACINAMIDE\PYRIDOXINE HYDROCHLORIDE\RIBOFLAVIN 5^-PHOSPHATE SODIUM\THIA
  5. VITAMIN A [Concomitant]
     Active Substance: VITAMIN A
  6. GLUTAMINE [Concomitant]
     Active Substance: GLUTAMINE
  7. ZINC GLUCONATE [Concomitant]
     Active Substance: ZINC GLUCONATE
  8. TIZANIDINE HYDROCHLORIDE [Concomitant]
     Active Substance: TIZANIDINE HYDROCHLORIDE
  9. ALEVE [Concomitant]
     Active Substance: NAPROXEN SODIUM
  10. ZYRTEC [Concomitant]
     Active Substance: CETIRIZINE HYDROCHLORIDE

REACTIONS (6)
  - Psoriatic arthropathy [Not Recovered/Not Resolved]
  - Oral disorder [Unknown]
  - Therapy interrupted [Unknown]
  - Nausea [Unknown]
  - Diarrhoea [Unknown]
  - Fatigue [Unknown]

NARRATIVE: CASE EVENT DATE: 20230701
